FAERS Safety Report 20012458 (Version 1)
Quarter: 2021Q4

REPORT INFORMATION
  Report Type: Spontaneous
  Country: US (occurrence: US)
  Receive Date: 20211029
  Receipt Date: 20211029
  Transmission Date: 20220303
  Serious: No
  Sender: FDA-Public Use
  Company Number: US-LUPIN PHARMACEUTICALS INC.-2021-20706

PATIENT
  Age: 64 Year
  Sex: Male

DRUGS (6)
  1. HYDROMORPHONE [Suspect]
     Active Substance: HYDROMORPHONE
     Indication: COVID-19
     Dosage: 0.2 MILLIGRAM (PATIENT-CONTROLLED ANALGESIA PUMP)
     Route: 065
  2. ALBUTEROL SULFATE [Suspect]
     Active Substance: ALBUTEROL SULFATE
     Indication: COVID-19
     Dosage: UNK (NEBULISERS)
  3. EPOPROSTENOL [Suspect]
     Active Substance: EPOPROSTENOL
     Indication: COVID-19
     Dosage: UNK
  4. DEXAMETHASONE [Suspect]
     Active Substance: DEXAMETHASONE
     Indication: COVID-19
     Dosage: UNK
     Route: 042
  5. BUMETANIDE [Suspect]
     Active Substance: BUMETANIDE
     Indication: COVID-19
     Dosage: UNK
     Route: 042
  6. IPRATROPIUM [Suspect]
     Active Substance: IPRATROPIUM
     Indication: COVID-19
     Dosage: NEBULISERS

REACTIONS (1)
  - Off label use [Unknown]
